FAERS Safety Report 16112273 (Version 1)
Quarter: 2019Q1

REPORT INFORMATION
  Report Type: Spontaneous
  Country: US (occurrence: US)
  Receive Date: 20190325
  Receipt Date: 20190325
  Transmission Date: 20190418
  Serious: Yes (Other)
  Sender: FDA-Public Use
  Company Number: US-BAYER-2019-057712

PATIENT
  Age: 65 Year
  Sex: Female
  Weight: 85 kg

DRUGS (1)
  1. MIRALAX [Suspect]
     Active Substance: POLYETHYLENE GLYCOL 3350
     Indication: GASTROINTESTINAL DISORDER
     Dosage: 1 DF, QD
     Route: 048
     Dates: start: 2019

REACTIONS (4)
  - Rectal haemorrhage [Unknown]
  - Pruritus generalised [Unknown]
  - Swelling [Unknown]
  - Burning sensation [Unknown]

NARRATIVE: CASE EVENT DATE: 2019
